FAERS Safety Report 22353534 (Version 1)
Quarter: 2023Q2

REPORT INFORMATION
  Report Type: Spontaneous
  Country: US (occurrence: US)
  Receive Date: 20230523
  Receipt Date: 20230523
  Transmission Date: 20230721
  Serious: No
  Sender: FDA-Public Use
  Company Number: US-GSKCCFUS-Case-01702553_AE-96103

PATIENT
  Sex: Female

DRUGS (3)
  1. TRELEGY ELLIPTA [Suspect]
     Active Substance: FLUTICASONE FUROATE\UMECLIDINIUM BROMIDE\VILANTEROL TRIFENATATE
     Indication: Product used for unknown indication
     Dosage: UNK
  2. ALBUTEROL SULFATE [Suspect]
     Active Substance: ALBUTEROL SULFATE
     Indication: Product used for unknown indication
     Dosage: UNK
  3. ARFORMOTEROL TARTRATE [Suspect]
     Active Substance: ARFORMOTEROL TARTRATE
     Indication: Product used for unknown indication
     Dosage: UNK

REACTIONS (3)
  - Labelled drug-drug interaction medication error [Unknown]
  - Wrong technique in device usage process [Unknown]
  - Drug ineffective [Unknown]
